FAERS Safety Report 7583173-1 (Version None)
Quarter: 2011Q2

REPORT INFORMATION
  Report Type: 
  Country: None (occurrence: None)
  Receive Date: 20110627
  Receipt Date: 20110627
  Transmission Date: 20111010
  Serious: No
  Sender: FDA-Public Use
  Company Number: None

PATIENT
  Sex: Male
  Weight: 90.7 kg

DRUGS (3)
  1. MERCAPTOPURINE [Suspect]
     Dosage: 2800 MG
     Dates: end: 20110330
  2. VINCRISTINE SULFATE [Suspect]
     Dosage: 8 MG
     Dates: end: 20110318
  3. METHOTREXATE [Suspect]
     Dosage: 41900 MG
     Dates: end: 20110318

REACTIONS (3)
  - HYPERGLYCAEMIA [None]
  - ASPARTATE AMINOTRANSFERASE INCREASED [None]
  - ALANINE AMINOTRANSFERASE INCREASED [None]
